FAERS Safety Report 7751899-2 (Version None)
Quarter: 2011Q3

REPORT INFORMATION
  Report Type: 
  Country: None (occurrence: None)
  Receive Date: 20110915
  Receipt Date: 20110906
  Transmission Date: 20111222
  Serious: Yes (Other)
  Sender: FDA-Public Use
  Company Number: ES-JNJFOC-20110902868

PATIENT
  Age: 38 Year
  Sex: Male

DRUGS (8)
  1. DOXORUBICIN HCL [Suspect]
     Route: 042
  2. ATRIPLA [Concomitant]
     Indication: HIV INFECTION
     Route: 065
  3. DOXORUBICIN HCL [Suspect]
     Route: 042
  4. DOXORUBICIN HCL [Suspect]
     Route: 042
     Dates: start: 20100501
  5. DOXORUBICIN HCL [Suspect]
     Indication: KAPOSI'S SARCOMA
     Route: 042
  6. DOXORUBICIN HCL [Suspect]
     Route: 042
  7. DOXORUBICIN HCL [Suspect]
     Route: 042
     Dates: start: 20100101
  8. DOXORUBICIN HCL [Suspect]
     Route: 042
     Dates: start: 20110819

REACTIONS (1)
  - URINARY INCONTINENCE [None]
